FAERS Safety Report 8351828-7 (Version None)
Quarter: 2012Q2

REPORT INFORMATION
  Report Type: 
  Country: None (occurrence: None)
  Receive Date: 20120511
  Receipt Date: 20120504
  Transmission Date: 20120825
  Serious: No
  Sender: FDA-Public Use
  Company Number: US-BIOGENIDEC-2012BI016204

PATIENT
  Age: 47 Year
  Sex: Female

DRUGS (2)
  1. TYSABRI [Suspect]
     Route: 042
     Dates: start: 20100504
  2. TYSABRI [Suspect]
     Indication: MULTIPLE SCLEROSIS
     Route: 042
     Dates: start: 20081014, end: 20090903

REACTIONS (5)
  - SPINAL COMPRESSION FRACTURE [None]
  - BACK PAIN [None]
  - HYPOGAMMAGLOBULINAEMIA [None]
  - INSOMNIA [None]
  - NECK PAIN [None]
